FAERS Safety Report 6295529-8 (Version None)
Quarter: 2009Q3

REPORT INFORMATION
  Report Type: 
  Country: None (occurrence: None)
  Receive Date: 20090731
  Receipt Date: 20090716
  Transmission Date: 20100115
  Serious: Yes (Other)
  Sender: FDA-Public Use
  Company Number: TPH-00202

PATIENT
  Sex: Female

DRUGS (1)
  1. TRIPHASIL-28 [Suspect]
     Indication: PREGNANCY
     Dosage: ORAL
     Route: 048
     Dates: start: 20090716

REACTIONS (3)
  - INCORRECT DOSE ADMINISTERED [None]
  - INTENTIONAL DRUG MISUSE [None]
  - SOMNOLENCE [None]
